FAERS Safety Report 14836659 (Version 1)
Quarter: 2018Q2

REPORT INFORMATION
  Report Type: Spontaneous
  Country: FR (occurrence: FR)
  Receive Date: 20180502
  Receipt Date: 20180502
  Transmission Date: 20180711
  Serious: Yes (Other)
  Sender: FDA-Public Use
  Company Number: FR-MERCK KGAA-2046970

PATIENT
  Sex: Female
  Weight: 57 kg

DRUGS (16)
  1. GAVISCON REGULAR STRENGTH(BIOMAG [Concomitant]
     Route: 065
  2. OROCAL (CALCIUM CARBONATE) [Suspect]
     Active Substance: CALCIUM CARBONATE
     Route: 065
  3. NOVOTHYROX [Suspect]
     Active Substance: LEVOTHYROXINE SODIUM
     Route: 048
     Dates: start: 20171212, end: 20180309
  4. CEBUTID [Concomitant]
     Active Substance: FLURBIPROFEN
     Route: 065
  5. TRANSIPEG [Concomitant]
     Active Substance: POLYETHYLENE GLYCOL 3350
     Route: 065
  6. TARDYFERON [Concomitant]
     Active Substance: FERROUS SULFATE
     Route: 065
  7. MOPRAL [Concomitant]
     Active Substance: OMEPRAZOLE
     Route: 065
  8. UVEDOSE [Concomitant]
     Active Substance: CHOLECALCIFEROL
     Route: 065
  9. NOVOTHYROX [Suspect]
     Active Substance: LEVOTHYROXINE SODIUM
     Indication: HYPOTHYROIDISM
     Route: 048
     Dates: start: 2017, end: 20171212
  10. ZOVIRAX [Concomitant]
     Active Substance: ACYCLOVIR
     Route: 065
  11. OTEZLA [Concomitant]
     Active Substance: APREMILAST
     Route: 065
  12. VOLTARENE (DICLOFENAC DIETHYLAMINE) [Concomitant]
     Active Substance: DICLOFENAC DIETHYLAMINE
     Route: 065
  13. SELECTOL [Concomitant]
     Active Substance: CELIPROLOL
     Route: 065
  14. SULFARLEM [Concomitant]
     Active Substance: ANETHOLTRITHION
     Route: 065
  15. LAMALINE (ACETAMINOPHEN\BELLADONNA LEAF\CAFFEINE\OPIUM) [Concomitant]
     Active Substance: ACETAMINOPHEN\BELLADONNA LEAF\CAFFEINE\OPIUM
     Route: 065
  16. TOCO [Concomitant]
     Active Substance: UNSPECIFIED INGREDIENT

REACTIONS (20)
  - Dry mouth [Unknown]
  - Disturbance in attention [Unknown]
  - Hypertension [Unknown]
  - Rash erythematous [Unknown]
  - Blood pressure increased [Unknown]
  - Dyspnoea at rest [Unknown]
  - Pruritus [Unknown]
  - Nausea [Recovered/Resolved]
  - Abdominal distension [Recovered/Resolved]
  - Swelling face [Not Recovered/Not Resolved]
  - Headache [Unknown]
  - Muscle spasms [Recovered/Resolved]
  - Asthenia [Recovered/Resolved with Sequelae]
  - Weight increased [Recovering/Resolving]
  - Tinnitus [Unknown]
  - Abdominal pain [Recovered/Resolved with Sequelae]
  - Choking sensation [Unknown]
  - Musculoskeletal stiffness [Recovered/Resolved with Sequelae]
  - Flatulence [None]
  - Joint swelling [Not Recovered/Not Resolved]

NARRATIVE: CASE EVENT DATE: 201712
